FAERS Safety Report 6032059-2 (Version None)
Quarter: 2009Q1

REPORT INFORMATION
  Report Type: 
  Country: None (occurrence: None)
  Receive Date: 20090108
  Receipt Date: 20090106
  Transmission Date: 20090719
  Serious: No
  Sender: FDA-Public Use
  Company Number: PW/030424/737

PATIENT
  Age: 28 Year
  Sex: Male

DRUGS (6)
  1. SUBUTEX [Suspect]
     Dosage: DOSE UNKNOWN
     Route: 048
     Dates: start: 20020514
  2. SUBUTEX [Suspect]
     Route: 060
  3. SUBUTEX [Suspect]
     Route: 048
  4. SUBUTEX [Suspect]
     Route: 048
     Dates: start: 20020514
  5. HEROIN [Suspect]
     Indication: DRUG ABUSE
     Dosage: DOSING INFORMATION UNKNOWN
  6. HEROIN [Concomitant]

REACTIONS (2)
  - MYOCLONIC EPILEPSY [None]
  - PANIC ATTACK [None]
